FAERS Safety Report 17749551 (Version 1)
Quarter: 2020Q2

REPORT INFORMATION
  Report Type: Spontaneous
  Country: US (occurrence: US)
  Receive Date: 20200506
  Receipt Date: 20200506
  Transmission Date: 20200714
  Serious: No
  Sender: FDA-Public Use
  Company Number: US-BEH-2020116924

PATIENT
  Sex: Female

DRUGS (6)
  1. ZARXIO [Suspect]
     Active Substance: FILGRASTIM-SNDZ
  2. HIZENTRA [Suspect]
     Active Substance: HUMAN IMMUNOGLOBULIN G
     Dosage: UNK
     Route: 058
  3. LOVENOX [Concomitant]
     Active Substance: ENOXAPARIN SODIUM
  4. HIZENTRA [Suspect]
     Active Substance: HUMAN IMMUNOGLOBULIN G
     Indication: HYPOGAMMAGLOBULINAEMIA
     Dosage: 9 GRAM (45ML), EVERY 5 DAYS)
     Route: 058
     Dates: start: 20180110
  5. ZARXIO [Concomitant]
     Active Substance: FILGRASTIM-SNDZ
  6. HIZENTRA [Suspect]
     Active Substance: HUMAN IMMUNOGLOBULIN G
     Dosage: UNK
     Route: 058

REACTIONS (1)
  - Bone pain [Not Recovered/Not Resolved]
